FAERS Safety Report 5924977-8 (Version None)
Quarter: 2008Q4

REPORT INFORMATION
  Report Type: 
  Country: None (occurrence: None)
  Receive Date: 20081021
  Receipt Date: 20081014
  Transmission Date: 20090506
  Serious: Yes (Other)
  Sender: FDA-Public Use
  Company Number: JP-BAXTER-2008BH010296

PATIENT
  Age: 75 Year
  Sex: Male

DRUGS (4)
  1. ENDOXAN BAXTER [Suspect]
     Indication: LYMPHOMA
     Dosage: DOSE UNIT:UNKNOWN
     Route: 065
     Dates: start: 20010901, end: 20020101
  2. PREDNISOLONE [Suspect]
     Indication: LYMPHOMA
     Dosage: DOSE UNIT:UNKNOWN
     Route: 065
     Dates: start: 20010901, end: 20020101
  3. DOXORUBICIN HCL [Suspect]
     Indication: LYMPHOMA
     Dosage: DOSE UNIT:UNKNOWN
     Route: 065
     Dates: start: 20010901, end: 20020101
  4. VINCRISTINE SULFATE [Suspect]
     Indication: LYMPHOMA
     Dosage: DOSE UNIT:UNKNOWN
     Route: 065
     Dates: start: 20010901, end: 20020101

REACTIONS (1)
  - GASTRIC CANCER [None]
